FAERS Safety Report 15436395 (Version 1)
Quarter: 2018Q3

REPORT INFORMATION
  Report Type: Spontaneous
  Country: BR (occurrence: BR)
  Receive Date: 20180927
  Receipt Date: 20180927
  Transmission Date: 20181010
  Serious: Yes (Other)
  Sender: FDA-Public Use
  Company Number: BR-PFIZER INC-2018343616

PATIENT
  Age: 68 Year
  Sex: Female

DRUGS (1)
  1. LORAX [Suspect]
     Active Substance: LORAZEPAM
     Dosage: UNK
     Dates: start: 1988

REACTIONS (5)
  - Diabetes mellitus [Unknown]
  - Hypokinesia [Unknown]
  - Feeling abnormal [Unknown]
  - Insomnia [Unknown]
  - Pain [Unknown]
